FAERS Safety Report 5002402-1 (Version None)
Quarter: 2006Q2

REPORT INFORMATION
  Report Type: 
  Country: None (occurrence: None)
  Receive Date: 20060510
  Receipt Date: 20060426
  Transmission Date: 20061013
  Serious: Yes (Hospitalization)
  Sender: FDA-Public Use
  Company Number: 2006PV012749

PATIENT
  Age: 44 Year
  Sex: Male
  Weight: 129.2752 kg

DRUGS (5)
  1. BYETTA [Suspect]
     Indication: DIABETES MELLITUS NON-INSULIN-DEPENDENT
     Dosage: 5 MCG; BID; SC
     Route: 058
     Dates: start: 20060322, end: 20060423
  2. GLIPIZIDE [Concomitant]
  3. ZOCOR [Concomitant]
  4. ALTACE [Concomitant]
  5. SYMBYAX [Concomitant]

REACTIONS (4)
  - ABDOMINAL PAIN [None]
  - ILEUS [None]
  - NAUSEA [None]
  - VOMITING [None]
